FAERS Safety Report 25125341 (Version 1)
Quarter: 2025Q1

REPORT INFORMATION
  Report Type: Spontaneous
  Country: US (occurrence: US)
  Receive Date: 20250326
  Receipt Date: 20250326
  Transmission Date: 20250409
  Serious: Yes (Other)
  Sender: AMARIN
  Company Number: US-Amarin Pharma  Inc-2025AMR000196

PATIENT
  Sex: Male

DRUGS (7)
  1. VASCEPA [Suspect]
     Active Substance: ICOSAPENT ETHYL
     Indication: Product used for unknown indication
     Route: 065
  2. VASCEPA [Suspect]
     Active Substance: ICOSAPENT ETHYL
  3. VASCEPA [Suspect]
     Active Substance: ICOSAPENT ETHYL
  4. VASCEPA [Suspect]
     Active Substance: ICOSAPENT ETHYL
  5. VASCEPA [Suspect]
     Active Substance: ICOSAPENT ETHYL
  6. VASCEPA [Suspect]
     Active Substance: ICOSAPENT ETHYL
  7. VASCEPA [Suspect]
     Active Substance: ICOSAPENT ETHYL

REACTIONS (4)
  - Wrist surgery [Unknown]
  - Product physical issue [Unknown]
  - Product odour abnormal [Unknown]
  - Product colour issue [Unknown]
